FAERS Safety Report 8893065 (Version 1)
Quarter: 2012Q4

REPORT INFORMATION
  Report Type: Spontaneous
  Country: US (occurrence: None)
  Receive Date: 20121101
  Receipt Date: 20121101
  Transmission Date: 20130627
  Serious: Yes (Death, Hospitalization)
  Sender: FDA-Public Use
  Company Number: MPS1-1000809

PATIENT
  Age: 8 Month
  Sex: Female

DRUGS (1)
  1. ALDURAZYME [Suspect]
     Route: 042

REACTIONS (1)
  - Myocardial infarction [None]
